FAERS Safety Report 9969908 (Version 1)
Quarter: 2014Q1

REPORT INFORMATION
  Report Type: Spontaneous
  Country: US (occurrence: None)
  Receive Date: 20140131
  Receipt Date: 20140131
  Transmission Date: 20141002
  Serious: Yes (Other)
  Sender: FDA-Public Use
  Company Number: 091076

PATIENT
  Sex: Female
  Weight: 54.4 kg

DRUGS (1)
  1. KEPPRA [Suspect]
     Indication: CONVULSION
     Dosage: 500 MG , 1 1/2  TABLET  ORAL ) THERAPY DATES  18SEP2012  UNTO NOT CONTINUING
     Route: 048
     Dates: start: 20120918

REACTIONS (1)
  - Convulsion [None]
